FAERS Safety Report 15152615 (Version 3)
Quarter: 2019Q1

REPORT INFORMATION
  Report Type: Report from Study
  Country: None (occurrence: TR)
  Receive Date: 20180717
  Receipt Date: 20190215
  Transmission Date: 20190417
  Serious: Yes (Hospitalization, Congenital Anomaly)
  Sender: FDA-Public Use
  Company Number: TR-ABBVIE-18K-161-2421014-00

PATIENT
  Age: 0 Day
  Sex: Male
  Weight: 8.75 kg

DRUGS (1)
  1. HUMIRA [Suspect]
     Active Substance: ADALIMUMAB
     Indication: MATERNAL EXPOSURE TIMING UNSPECIFIED
     Route: 064

REACTIONS (3)
  - Intestinal fistula [Recovered/Resolved]
  - Foetal exposure during pregnancy [Unknown]
  - Anal atresia [Recovered/Resolved]

NARRATIVE: CASE EVENT DATE: 20180613
